FAERS Safety Report 7396576-5 (Version None)
Quarter: 2011Q2

REPORT INFORMATION
  Report Type: 
  Country: None (occurrence: None)
  Receive Date: 20110406
  Receipt Date: 20110325
  Transmission Date: 20111010
  Serious: Yes (Other)
  Sender: FDA-Public Use
  Company Number: PHHO2011US03406

PATIENT
  Age: 46 Year
  Sex: Female
  Weight: 66 kg

DRUGS (3)
  1. BLINDED INTERFERON BETA [Suspect]
     Indication: MULTIPLE SCLEROSIS
     Dosage: DOUBLE BLIND
     Route: 048
  2. BLINDED FTY 720 [Suspect]
     Indication: MULTIPLE SCLEROSIS
     Dosage: DOUBLE BLIND
     Route: 048
  3. BLINDED NO TREATMENT RECEIVED [Suspect]
     Indication: MULTIPLE SCLEROSIS
     Dosage: DOUBLE BLIND
     Route: 048

REACTIONS (5)
  - DYSPNOEA [None]
  - CARDIAC ARREST [None]
  - VENTRICULAR TACHYCARDIA [None]
  - STAPHYLOCOCCAL INFECTION [None]
  - SUBCUTANEOUS ABSCESS [None]
